FAERS Safety Report 9373466 (Version 1)
Quarter: 2013Q2

REPORT INFORMATION
  Report Type: Spontaneous
  Country: CO (occurrence: CO)
  Receive Date: 20130627
  Receipt Date: 20130627
  Transmission Date: 20140414
  Serious: Yes (Hospitalization, Other)
  Sender: FDA-Public Use
  Company Number: CO-ASTRAZENECA-2013SE31752

PATIENT
  Age: 70 Year
  Sex: Male

DRUGS (5)
  1. BRILINTA [Suspect]
     Route: 048
  2. ASA [Concomitant]
     Route: 048
  3. METOPROLOL [Concomitant]
     Route: 048
  4. ATORVASTATIN [Concomitant]
     Route: 048
  5. ISOSORBIDE [Concomitant]
     Indication: PAIN
     Route: 060

REACTIONS (4)
  - Haemoglobin decreased [Unknown]
  - Duodenal ulcer haemorrhage [Recovered/Resolved]
  - White blood cell count increased [Unknown]
  - Presyncope [Unknown]
